FAERS Safety Report 6528645-3 (Version None)
Quarter: 2010Q1

REPORT INFORMATION
  Report Type: 
  Country: None (occurrence: None)
  Receive Date: 20100106
  Receipt Date: 20091229
  Transmission Date: 20100710
  Serious: Yes (Other)
  Sender: FDA-Public Use
  Company Number: US-MERCK-0912USA03654

PATIENT
  Sex: Female

DRUGS (3)
  1. COZAAR [Suspect]
     Indication: HYPERTENSION
     Route: 048
     Dates: start: 19960101, end: 20080101
  2. COZAAR [Suspect]
     Route: 048
     Dates: start: 20080101
  3. DURICEF [Suspect]
     Route: 065

REACTIONS (5)
  - COMA [None]
  - DYSPNOEA [None]
  - HERPES ZOSTER [None]
  - PHYSICAL ASSAULT [None]
  - WEIGHT INCREASED [None]
